FAERS Safety Report 9768367 (Version 1)
Quarter: 2013Q4

REPORT INFORMATION
  Report Type: Spontaneous
  Country: NO (occurrence: NO)
  Receive Date: 20131217
  Receipt Date: 20131217
  Transmission Date: 20140711
  Serious: Yes (Hospitalization)
  Sender: FDA-Public Use
  Company Number: PHHY2013NO143492

PATIENT
  Age: 90 Year
  Sex: Male

DRUGS (9)
  1. METOPROLOL [Suspect]
     Indication: BLOOD PRESSURE INCREASED
     Dosage: 100 MG, UNK
     Route: 048
     Dates: start: 201302
  2. METOPROLOL [Suspect]
     Indication: ANGINA PECTORIS
  3. BURINEX [Concomitant]
     Indication: OEDEMA DUE TO CARDIAC DISEASE
     Dosage: 50 MG, QD
     Route: 048
  4. NITROGLYCERINE [Concomitant]
     Indication: ANGINA PECTORIS
  5. SPIRIX [Concomitant]
     Indication: OEDEMA DUE TO CARDIAC DISEASE
     Dosage: 25 MG, QD
     Route: 048
  6. SOMAC [Concomitant]
     Indication: GASTROOESOPHAGEAL REFLUX DISEASE
     Dates: start: 2013
  7. ATACAND [Concomitant]
     Indication: BLOOD PRESSURE INCREASED
     Dosage: 4 MG, QD
     Route: 048
     Dates: start: 20131016
  8. ALBYL [Concomitant]
     Indication: MYOCARDIAL INFARCTION
     Dosage: 75 MG, QD
     Route: 048
  9. NEURONTIN [Concomitant]
     Indication: PAIN IN EXTREMITY
     Dosage: 600 MG, QD

REACTIONS (4)
  - Balance disorder [Unknown]
  - Myocardial infarction [Unknown]
  - Blood pressure fluctuation [Unknown]
  - Dizziness [Unknown]
